FAERS Safety Report 10296516 (Version 2)
Quarter: 2014Q3

REPORT INFORMATION
  Report Type: Spontaneous
  Country: FR (occurrence: FR)
  Receive Date: 20140711
  Receipt Date: 20140818
  Transmission Date: 20150326
  Serious: Yes (Death, Hospitalization, Other)
  Sender: FDA-Public Use
  Company Number: FR-ASTRAZENECA-2014SE48992

PATIENT
  Age: 344 Month
  Sex: Female

DRUGS (9)
  1. VFEND [Suspect]
     Active Substance: VORICONAZOLE
     Route: 048
     Dates: start: 201404
  2. DOXORUBICINE TEVA [Suspect]
     Active Substance: DOXORUBICIN
     Indication: HODGKIN^S DISEASE
     Dosage: 41.5 MG, COURSE
     Route: 042
     Dates: start: 20131025, end: 20140607
  3. INEXIUM [Suspect]
     Active Substance: ESOMEPRAZOLE
     Route: 048
  4. VELBE [Suspect]
     Active Substance: VINBLASTINE SULFATE
     Indication: HODGKIN^S DISEASE
     Dosage: 10 MG, COURSE
     Route: 042
     Dates: start: 20131025, end: 20140607
  5. BLEOMYCINE BELLON [Suspect]
     Active Substance: BLEOMYCIN SULFATE
     Indication: HODGKIN^S DISEASE
     Dosage: 9 MG, COURSE
     Route: 042
     Dates: start: 20131025, end: 20140607
  6. CLIMASTON [Concomitant]
     Active Substance: ESTRADIOL\PROGESTERONE
     Route: 048
  7. DACARBAZINE LIPOMED [Suspect]
     Active Substance: DACARBAZINE
     Indication: HODGKIN^S DISEASE
     Dosage: 200 MG, COURSE
     Route: 042
     Dates: start: 20131025, end: 20140607
  8. TEMERIT [Suspect]
     Active Substance: NEBIVOLOL
     Route: 048
     Dates: start: 201402, end: 20140611
  9. METHYLPREDNISOLONE MYLAN [Suspect]
     Active Substance: METHYLPREDNISOLONE
     Dosage: 200 MG COURSE
     Route: 042
     Dates: start: 20131108, end: 20140607

REACTIONS (9)
  - Raynaud^s phenomenon [Not Recovered/Not Resolved]
  - Vasculitis [Unknown]
  - Coma [Fatal]
  - Skin ulcer [Unknown]
  - Hypercoagulation [Unknown]
  - Extremity necrosis [Not Recovered/Not Resolved]
  - Cardiac arrest [Fatal]
  - Microangiopathy [Unknown]
  - Hypoxic-ischaemic encephalopathy [Fatal]

NARRATIVE: CASE EVENT DATE: 201405
